FAERS Safety Report 18034294 (Version 2)
Quarter: 2020Q3

REPORT INFORMATION
  Report Type: Spontaneous
  Country: US (occurrence: US)
  Receive Date: 20200716
  Receipt Date: 20200723
  Transmission Date: 20201103
  Serious: Yes (Other)
  Sender: FDA-Public Use
  Company Number: US-TEVA-2020-US-1799903

PATIENT
  Sex: Female

DRUGS (5)
  1. PREDNISONE. [Suspect]
     Active Substance: PREDNISONE
     Dosage: 15 MILLIGRAM DAILY; LONG TERM MAINTENANCE THERAPY
     Route: 048
  2. LISINOPRIL. [Concomitant]
     Active Substance: LISINOPRIL
     Indication: NEPHROTIC SYNDROME
     Dosage: 15 MILLIGRAM DAILY;
     Route: 065
  3. PREDNISONE. [Suspect]
     Active Substance: PREDNISONE
     Indication: NEPHROTIC SYNDROME
     Dosage: HIGH DOSE
     Route: 048
  4. ACTHAR [Suspect]
     Active Substance: CORTICOTROPIN
     Indication: NEPHROTIC SYNDROME
     Dosage: GEL INJECTED AS SUBCUTANEOUS INJECTION TWICE A WEEK
     Route: 058
  5. CICLOSPORIN [Concomitant]
     Active Substance: CYCLOSPORINE
     Indication: NEPHROTIC SYNDROME
     Dosage: 100 MILLIGRAM DAILY;
     Route: 065

REACTIONS (7)
  - Drug resistance [Unknown]
  - Blood glucose increased [Recovering/Resolving]
  - Central obesity [Recovering/Resolving]
  - Blood pressure increased [Recovering/Resolving]
  - Menstruation irregular [Recovering/Resolving]
  - Acne [Recovering/Resolving]
  - Affect lability [Recovering/Resolving]
